FAERS Safety Report 23885789 (Version 1)
Quarter: 2024Q2

REPORT INFORMATION
  Report Type: Spontaneous
  Country: US (occurrence: None)
  Receive Date: 20240522
  Receipt Date: 20240522
  Transmission Date: 20240715
  Serious: Yes (Other)
  Sender: FDA-Public Use
  Company Number: None

PATIENT
  Age: 39 Year
  Sex: Female
  Weight: 78.3 kg

DRUGS (1)
  1. BENDAMUSTINE [Suspect]
     Active Substance: BENDAMUSTINE
     Indication: Non-Hodgkin^s lymphoma
     Dosage: 160  MG Q21 DAYS INTRAVENOUS
     Route: 042
     Dates: start: 20240419, end: 20240419

REACTIONS (3)
  - Extravasation [None]
  - Infusion related reaction [None]
  - Tissue injury [None]

NARRATIVE: CASE EVENT DATE: 20240419
